FAERS Safety Report 8356015 (Version 2)
Quarter: 2013Q1

REPORT INFORMATION
  Report Type: Spontaneous
  Country: US (occurrence: US)
  Receive Date: 20120126
  Receipt Date: 20130125
  Transmission Date: 20140127
  Serious: Yes (Other)
  Sender: FDA-Public Use
  Company Number: US-ELI_LILLY_AND_COMPANY-US201201007067

PATIENT
  Sex: Female

DRUGS (13)
  1. BYETTA [Suspect]
     Indication: DIABETES MELLITUS
     Dosage: 10 UG, BID
  2. ASPIRIN [Concomitant]
     Dosage: 81 MG, QD
  3. CALCIUM [Concomitant]
     Dosage: 500 MG, TID
  4. EPITOL [Concomitant]
     Dosage: 200 MG, QID
  5. GLIMEPIRIDE [Concomitant]
     Dosage: 4 MG, BID
  6. LEVOTHYROXINE [Concomitant]
     Dosage: 200 UG, QD
  7. METFORMIN [Concomitant]
     Dosage: 500 MG, BID
  8. UNIVASC [Concomitant]
     Dosage: 15 MG, QD
  9. CRESTOR [Concomitant]
     Dosage: 10 MG, QD
  10. SERTRALINE [Concomitant]
     Dosage: 25 MG, QD
  11. PERCOCET [Concomitant]
     Indication: PAIN
  12. MULTIVITAMIN [Concomitant]
     Dosage: 1 DF, QD
  13. FISH OIL [Concomitant]

REACTIONS (1)
  - Papillary thyroid cancer [Unknown]
